FAERS Safety Report 16656017 (Version 1)
Quarter: 2019Q3

REPORT INFORMATION
  Report Type: Report from Study
  Country: US (occurrence: US)
  Receive Date: 20190801
  Receipt Date: 20190801
  Transmission Date: 20191004
  Serious: Yes (Hospitalization)
  Sender: FDA-Public Use
  Company Number: US-JNJFOC-20190742770

PATIENT
  Sex: Male

DRUGS (16)
  1. CEPHALEXIN                         /00145501/ [Concomitant]
     Active Substance: CEPHALEXIN
  2. FERROUS SULFATE. [Concomitant]
     Active Substance: FERROUS SULFATE
  3. TRAMADOL HCL [Concomitant]
     Active Substance: TRAMADOL HYDROCHLORIDE
  4. ALLOPURINOL. [Concomitant]
     Active Substance: ALLOPURINOL
  5. TAMSULOSIN HCL [Concomitant]
     Active Substance: TAMSULOSIN HYDROCHLORIDE
  6. BICALUTAMIDE. [Concomitant]
     Active Substance: BICALUTAMIDE
  7. RAMIPRIL. [Concomitant]
     Active Substance: RAMIPRIL
  8. ELIQUIS [Concomitant]
     Active Substance: APIXABAN
  9. DOXYCYCLINE HYCLATE. [Concomitant]
     Active Substance: DOXYCYCLINE HYCLATE
  10. IMBRUVICA [Suspect]
     Active Substance: IBRUTINIB
     Indication: PROSTATE CANCER
     Dosage: 420 MG, QD
     Route: 048
     Dates: start: 20180405
  11. PANTOPRAZOLE SODIUM. [Concomitant]
     Active Substance: PANTOPRAZOLE SODIUM
  12. MYRBETRIQ [Concomitant]
     Active Substance: MIRABEGRON
  13. SOTALOL HCL [Concomitant]
     Active Substance: SOTALOL
  14. FUROSEMIDE. [Concomitant]
     Active Substance: FUROSEMIDE
  15. METOPROLOL SUCCINATE. [Concomitant]
     Active Substance: METOPROLOL SUCCINATE
  16. CIPROFLOXACIN. [Concomitant]
     Active Substance: CIPROFLOXACIN

REACTIONS (3)
  - Skin infection [Recovering/Resolving]
  - Limb discomfort [Recovering/Resolving]
  - Clostridium difficile infection [Recovering/Resolving]
